FAERS Safety Report 20201832 (Version 1)
Quarter: 2021Q4

REPORT INFORMATION
  Report Type: Spontaneous
  Country: JP (occurrence: JP)
  Receive Date: 20211217
  Receipt Date: 20211217
  Transmission Date: 20220303
  Serious: Yes (Other)
  Sender: FDA-Public Use
  Company Number: JP-009507513-2112JPN006387

PATIENT
  Age: 7 Decade
  Sex: Female

DRUGS (3)
  1. DORZOLAMIDE HYDROCHLORIDE [Suspect]
     Active Substance: DORZOLAMIDE HYDROCHLORIDE
     Dosage: UNKNOWN
     Route: 047
  2. COSOPT [Suspect]
     Active Substance: DORZOLAMIDE HYDROCHLORIDE\TIMOLOL MALEATE
     Dosage: UNKNOWN
     Route: 047
     Dates: start: 202106
  3. TAFLUPROST [Suspect]
     Active Substance: TAFLUPROST
     Dosage: UNKNOWN
     Route: 047
     Dates: start: 202106

REACTIONS (2)
  - Asthma [Unknown]
  - Eye pruritus [Unknown]
